FAERS Safety Report 4707558-3 (Version None)
Quarter: 2005Q3

REPORT INFORMATION
  Report Type: 
  Country: None (occurrence: None)
  Receive Date: 20050706
  Receipt Date: 20050627
  Transmission Date: 20060218
  Serious: Yes (Hospitalization, Other)
  Sender: FDA-Public Use
  Company Number: US-JNJFOC-20050304990

PATIENT
  Sex: Male

DRUGS (4)
  1. LEVAQUIN [Suspect]
     Indication: INFECTION
  2. MACROBID [Suspect]
     Indication: INFECTION PROPHYLAXIS
  3. HYDROCHLOROTHIAZIDE [Concomitant]
  4. DIOVAN [Concomitant]

REACTIONS (8)
  - ARRHYTHMIA [None]
  - ATRIAL FIBRILLATION [None]
  - CEREBROVASCULAR ACCIDENT [None]
  - CHILLS [None]
  - CONVULSION [None]
  - DYSURIA [None]
  - HEART RATE INCREASED [None]
  - POLLAKIURIA [None]
